FAERS Safety Report 26050040 (Version 1)
Quarter: 2025Q4

REPORT INFORMATION
  Report Type: Report from Study
  Country: US (occurrence: US)
  Receive Date: 20251116
  Receipt Date: 20251116
  Transmission Date: 20260119
  Serious: Yes (Hospitalization)
  Sender: JOHNSON AND JOHNSON
  Company Number: US-JNJFOC-20251159246

PATIENT
  Age: 42 Year
  Sex: Male

DRUGS (3)
  1. SPRAVATO [Suspect]
     Active Substance: ESKETAMINE
     Indication: Depression
     Dosage: ?84 MG, 31  TOTAL DOSES?
     Route: 045
     Dates: start: 20250205, end: 20251030
  2. SPRAVATO [Suspect]
     Active Substance: ESKETAMINE
     Dosage: ?84 MG, 1  TOTAL DOSES?
     Route: 045
     Dates: start: 20251113, end: 20251113
  3. SPRAVATO [Suspect]
     Active Substance: ESKETAMINE
     Dosage: ?56 MG, 2 TOTAL DOSES?
     Route: 045
     Dates: start: 20250128, end: 20250130

REACTIONS (2)
  - Dissociation [Unknown]
  - Hypertension [Unknown]

NARRATIVE: CASE EVENT DATE: 20251113
